FAERS Safety Report 7249982-3 (Version None)
Quarter: 2011Q1

REPORT INFORMATION
  Report Type: 
  Country: None (occurrence: None)
  Receive Date: 20110128
  Receipt Date: 20110120
  Transmission Date: 20110831
  Serious: Yes (Hospitalization)
  Sender: FDA-Public Use
  Company Number: US-JNJFOC-20110105623

PATIENT
  Sex: Female
  Weight: 70.31 kg

DRUGS (2)
  1. REMICADE [Suspect]
     Indication: CROHN'S DISEASE
     Route: 042
  2. LEXAPRO [Concomitant]
     Indication: ANXIETY
     Route: 048

REACTIONS (5)
  - SMALL INTESTINAL RESECTION [None]
  - INFECTION [None]
  - HERNIA [None]
  - FLUID RETENTION [None]
  - DRUG INEFFECTIVE [None]
